FAERS Safety Report 18893977 (Version 1)
Quarter: 2021Q1

REPORT INFORMATION
  Report Type: Spontaneous
  Country: ES (occurrence: ES)
  Receive Date: 20210215
  Receipt Date: 20210215
  Transmission Date: 20210420
  Serious: Yes (Hospitalization)
  Sender: FDA-Public Use
  Company Number: ES-TEVA-2021-ES-1879002

PATIENT
  Age: 75 Year
  Sex: Male

DRUGS (4)
  1. TICAGRELOR (8461A) [Concomitant]
     Indication: PROPHYLAXIS
     Dosage: 90MILLIGRAM
     Route: 048
     Dates: start: 20200901
  2. OMEPRAZOL (2141A) [Concomitant]
     Active Substance: OMEPRAZOLE
     Indication: PROPHYLAXIS
     Dosage: 20MILLIGRAM
     Route: 048
     Dates: start: 20200901, end: 20201223
  3. ATORVASTATINA (7400A) [Suspect]
     Active Substance: ATORVASTATIN
     Indication: ACUTE MYOCARDIAL INFARCTION
     Dosage: 80MILLIGRAM
     Route: 048
     Dates: start: 20200901, end: 20201224
  4. DILTIAZEM HIDROCLORURO (3735CH) [Suspect]
     Active Substance: DILTIAZEM HYDROCHLORIDE
     Indication: ACUTE MYOCARDIAL INFARCTION
     Dosage: 120MILLIGRAM
     Route: 048
     Dates: start: 20201001, end: 20201224

REACTIONS (1)
  - Hepatitis cholestatic [Recovered/Resolved]

NARRATIVE: CASE EVENT DATE: 20201216
